FAERS Safety Report 16393264 (Version 1)
Quarter: 2019Q2

REPORT INFORMATION
  Report Type: Spontaneous
  Country: JP (occurrence: JP)
  Receive Date: 20190605
  Receipt Date: 20190605
  Transmission Date: 20190711
  Serious: Yes (Other)
  Sender: FDA-Public Use
  Company Number: JP-SA-2019SA151804

PATIENT
  Age: 65 Year
  Sex: Male

DRUGS (4)
  1. PYRAZINAMIDE. [Concomitant]
     Active Substance: PYRAZINAMIDE
     Indication: TUBERCULOUS PLEURISY
  2. ISONIAZID. [Suspect]
     Active Substance: ISONIAZID
     Indication: TUBERCULOUS PLEURISY
     Dosage: UNK
     Dates: start: 201706
  3. RIFAMPICIN [Suspect]
     Active Substance: RIFAMPIN
     Indication: TUBERCULOUS PLEURISY
     Dosage: UNK
     Dates: start: 201706
  4. ETHAMBUTOL [Concomitant]
     Active Substance: ETHAMBUTOL HYDROCHLORIDE
     Indication: TUBERCULOUS PLEURISY

REACTIONS (4)
  - Extrapulmonary tuberculosis [Recovering/Resolving]
  - Wound abscess [Recovering/Resolving]
  - Drug ineffective [Recovering/Resolving]
  - Purulent discharge [Recovering/Resolving]
